FAERS Safety Report 10416394 (Version 3)
Quarter: 2015Q1

REPORT INFORMATION
  Report Type: Spontaneous
  Country: US (occurrence: None)
  Receive Date: 20140826
  Receipt Date: 20150225
  Transmission Date: 20150720
  Serious: Yes (Hospitalization)
  Sender: FDA-Public Use
  Company Number: 2493690

PATIENT
  Age: 59 Year
  Sex: Female
  Weight: 78.6 kg

DRUGS (13)
  1. COLECALCIFEROL [Concomitant]
     Active Substance: CHOLECALCIFEROL
  2. CITALOPRAM HYDROBROMIDE. [Concomitant]
     Active Substance: CITALOPRAM HYDROBROMIDE
  3. CYTARABINE INJECTION (CYTARABINE) [Suspect]
     Active Substance: CYTARABINE
     Indication: ACUTE MYELOID LEUKAEMIA
     Dosage: CYCLICAL
     Route: 041
     Dates: start: 20140505, end: 20140601
  4. METOPROLOL TARTRATE. [Concomitant]
     Active Substance: METOPROLOL TARTRATE
  5. ONDANSETRON HYDROCHLORIDE. [Concomitant]
     Active Substance: ONDANSETRON HYDROCHLORIDE
  6. VANCOMYCIN [Concomitant]
     Active Substance: VANCOMYCIN
  7. LEVOTHYROXINE [Concomitant]
     Active Substance: LEVOTHYROXINE
  8. MULTIVITAMIN [Concomitant]
     Active Substance: VITAMINS
  9. INVESTIGATIONAL DRUG [Suspect]
     Active Substance: INVESTIGATIONAL PRODUCT
     Indication: ACUTE MYELOID LEUKAEMIA
     Dosage: 100 MG MILLIGRAM(S), 1 DAY
     Route: 048
     Dates: start: 20140224, end: 20140608
  10. ACICLOVIR [Concomitant]
     Active Substance: ACYCLOVIR
  11. LEVOFLOXACIN. [Concomitant]
     Active Substance: LEVOFLOXACIN
  12. ALUMINIUM HYDROXIDE GEL W/MAGNESIUM [Concomitant]
  13. HEPARIN [Concomitant]
     Active Substance: HEPARIN SODIUM

REACTIONS (10)
  - Pleural effusion [None]
  - Lung consolidation [None]
  - Clostridium test positive [None]
  - Confusional state [None]
  - Diarrhoea [None]
  - Platelet count decreased [None]
  - Hyponatraemia [None]
  - Abdominal pain [None]
  - Febrile neutropenia [None]
  - Haemoglobin decreased [None]

NARRATIVE: CASE EVENT DATE: 20140609
